FAERS Safety Report 7628433-0 (Version None)
Quarter: 2011Q3

REPORT INFORMATION
  Report Type: 
  Country: None (occurrence: None)
  Receive Date: 20110722
  Receipt Date: 20110711
  Transmission Date: 20111222
  Serious: Yes (Hospitalization)
  Sender: FDA-Public Use
  Company Number: FR-CELGENEUS-056-C5013-11040251

PATIENT
  Sex: Male
  Weight: 60 kg

DRUGS (3)
  1. BIONOLYTE GLUCOSE [Concomitant]
     Route: 051
     Dates: start: 20110222, end: 20110228
  2. LENALIDOMIDE [Suspect]
     Indication: MANTLE CELL LYMPHOMA
     Dosage: 10 MILLIGRAM
     Route: 048
     Dates: start: 20100209, end: 20110419
  3. AUGMENTIN '125' [Concomitant]
     Route: 051
     Dates: start: 20110222, end: 20110228

REACTIONS (1)
  - LUNG INFECTION [None]
